FAERS Safety Report 11100520 (Version 1)
Quarter: 2015Q2

REPORT INFORMATION
  Report Type: Spontaneous
  Country: FI (occurrence: None)
  Receive Date: 20150506
  Receipt Date: 20150506
  Transmission Date: 20150821
  Serious: Yes (Other)
  Sender: FDA-Public Use
  Company Number: 2015FE01423

PATIENT
  Age: 88 Year
  Sex: Male

DRUGS (2)
  1. XGEVA [Suspect]
     Active Substance: DENOSUMAB
     Dates: start: 201501
  2. FIRMAGON [Suspect]
     Active Substance: DEGARELIX ACETATE
     Indication: PROSTATE CANCER
     Route: 058
     Dates: start: 201501

REACTIONS (6)
  - Vision blurred [None]
  - Blood pressure increased [None]
  - Arthralgia [None]
  - Peripheral swelling [None]
  - Myalgia [None]
  - Heart rate increased [None]
